FAERS Safety Report 7150062-6 (Version None)
Quarter: 2010Q4

REPORT INFORMATION
  Report Type: 
  Country: None (occurrence: None)
  Receive Date: 20101210
  Receipt Date: 20101207
  Transmission Date: 20110411
  Serious: Yes (Other)
  Sender: FDA-Public Use
  Company Number: US-PFIZER INC-2010166426

PATIENT
  Sex: Female
  Weight: 58.957 kg

DRUGS (2)
  1. CELEBREX [Suspect]
     Indication: OSTEOARTHRITIS
     Dosage: 200 MG, 1X/DAY
     Route: 048
     Dates: start: 20101119, end: 20101206
  2. FOSAMAX [Concomitant]
     Indication: OSTEOPOROSIS
     Dosage: 75 MG, WEEKLY
     Route: 048

REACTIONS (4)
  - HYPOAESTHESIA [None]
  - MIDDLE INSOMNIA [None]
  - PAIN IN EXTREMITY [None]
  - PARAESTHESIA [None]
